FAERS Safety Report 9732256 (Version 3)
Quarter: 2013Q4

REPORT INFORMATION
  Report Type: Spontaneous
  Country: PL (occurrence: PL)
  Receive Date: 20131205
  Receipt Date: 20131209
  Transmission Date: 20140711
  Serious: Yes (Other)
  Sender: FDA-Public Use
  Company Number: PL-TEVA-347538ISR

PATIENT
  Age: 3 Year
  Sex: Male

DRUGS (21)
  1. FLUDARABINE [Suspect]
     Indication: ACUTE LYMPHOCYTIC LEUKAEMIA
     Dosage: 5 X 30 MG/M2
     Route: 065
  2. FLUDARABINE [Suspect]
     Indication: BONE MARROW CONDITIONING REGIMEN
     Dosage: 30MG/M2 DAILY FROM D8 TO D4
     Route: 042
  3. CICLOSPORIN [Suspect]
     Indication: PROPHYLAXIS AGAINST GRAFT VERSUS HOST DISEASE
     Dosage: FROM DAY +1 TO DAY +20
     Route: 065
  4. VINCRISTINE [Suspect]
     Indication: T-CELL TYPE ACUTE LEUKAEMIA
     Dosage: 1.5 MG/M2, ON D1,6 OF HR1 PROTOCOL.
     Route: 065
  5. BUSILVEX [Suspect]
     Indication: ACUTE LYMPHOCYTIC LEUKAEMIA
     Dosage: 2 X 1 MG/KG
     Route: 042
  6. BUSILVEX [Suspect]
     Indication: BONE MARROW CONDITIONING REGIMEN
     Dosage: 0.5MG/KG TWICE DAILY OND4 AND D2
     Route: 042
  7. ATG-FRESNIUS [Suspect]
     Indication: ACUTE LYMPHOCYTIC LEUKAEMIA
     Dosage: 3 X 20 MG/KG
     Route: 065
  8. ATG-FRESNIUS [Suspect]
     Indication: BONE MARROW CONDITIONING REGIMEN
     Dosage: 20MG/KG DAILY FOM D4 TO D1
     Route: 042
  9. METHYLPREDNISOLONE [Suspect]
     Indication: PROPHYLAXIS AGAINST GRAFT VERSUS HOST DISEASE
     Dosage: FROM DAY +1 TO DAY +20
     Route: 065
  10. METHYLPREDNISOLONE [Suspect]
     Indication: PROPHYLAXIS AGAINST TRANSPLANT REJECTION
  11. MUROMONAB CD3 [Suspect]
     Indication: PROPHYLAXIS AGAINST GRAFT VERSUS HOST DISEASE
     Dosage: FROM DAY +1 TO DAY +20
     Route: 065
  12. MUROMONAB CD3 [Suspect]
     Indication: PROPHYLAXIS AGAINST TRANSPLANT REJECTION
  13. DEXAMETHASONE [Suspect]
     Indication: T-CELL TYPE ACUTE LEUKAEMIA
     Dosage: ON D 1-5 ON HR1 HR2 HR3 PROTOCOL
     Route: 065
  14. ASPARAGINASE [Suspect]
     Indication: T-CELL TYPE ACUTE LEUKAEMIA
     Dosage: 25000 U/M2, ON D6, HR1 HR2 HR3 PROTOCOL
     Route: 065
  15. METHOTREXATE [Suspect]
     Indication: T-CELL TYPE ACUTE LEUKAEMIA
     Dosage: 1 G/M2, ON D1 OF HR1 HR2 HR3 PROTOCOL
     Route: 065
  16. CYTARABINE [Suspect]
     Indication: T-CELL TYPE ACUTE LEUKAEMIA
     Dosage: 2X150MG/M2, ON D5 OF HR1 PROTOCOL, D1-2 OF HR3 PROTOCOL
     Route: 065
  17. CYCLOPHOSPHAMIDE [Suspect]
     Dosage: 2X100MG/M2, ON D2 (1DOSE), D3-4 2DOSES, OF HR1 PROTOCOL
  18. VINDESINE [Suspect]
     Indication: T-CELL TYPE ACUTE LEUKAEMIA
     Dosage: 3MG/M2 ON D1,6 OF HR2 PROTOCOL
  19. DAUNORUBICIN [Suspect]
     Indication: T-CELL TYPE ACUTE LEUKAEMIA
     Dosage: 30 MG/M2, ON D5 OF HR2 PROTOCOL
  20. IFOSFAMIDE [Suspect]
     Indication: T-CELL TYPE ACUTE LEUKAEMIA
     Dosage: 2X400MG ON D2 (1DOSE) HR2 PROTOCOL
  21. IFOSFAMIDE [Suspect]
     Dosage: 2X400MG ON D3-4 (2DOSES) HR2 PROTOCOL

REACTIONS (9)
  - Leukopenia [Recovered/Resolved]
  - Agranulocytosis [Recovered/Resolved]
  - Mucosal inflammation [Unknown]
  - Adenovirus infection [Recovered/Resolved]
  - BK virus infection [Recovered/Resolved]
  - Cystitis haemorrhagic [Recovered/Resolved]
  - Post transplant lymphoproliferative disorder [Recovered/Resolved]
  - Cytomegalovirus viraemia [Recovered/Resolved]
  - Viraemia [Recovered/Resolved]
